FAERS Safety Report 24016341 (Version 2)
Quarter: 2025Q1

REPORT INFORMATION
  Report Type: Spontaneous
  Country: US (occurrence: US)
  Receive Date: 20240626
  Receipt Date: 20250328
  Transmission Date: 20250408
  Serious: No
  Sender: SANOFI AVENTIS
  Company Number: US-SA-SAC20240622000057

PATIENT
  Age: 53 Year
  Sex: Female

DRUGS (2)
  1. KEVZARA [Suspect]
     Active Substance: SARILUMAB
     Indication: Rheumatoid arthritis
     Dosage: 200 MG, QM
     Route: 058
  2. LISINOPRIL [Concomitant]
     Active Substance: LISINOPRIL

REACTIONS (6)
  - Cough [Unknown]
  - Peripheral swelling [Unknown]
  - Erythema [Unknown]
  - Localised infection [Unknown]
  - Product dose omission in error [Unknown]
  - Inappropriate schedule of product administration [Unknown]
